FAERS Safety Report 12896478 (Version 1)
Quarter: 2016Q4

REPORT INFORMATION
  Report Type: Spontaneous
  Country: US (occurrence: US)
  Receive Date: 20161028
  Receipt Date: 20161028
  Transmission Date: 20170207
  Serious: Yes (Other)
  Sender: FDA-Public Use
  Company Number: None

PATIENT
  Age: 32 Year
  Sex: Female
  Weight: 70.37 kg

DRUGS (2)
  1. NEXPLANON [Suspect]
     Active Substance: ETONOGESTREL
  2. MVI [Concomitant]
     Active Substance: VITAMINS

REACTIONS (13)
  - Implant site pain [None]
  - Depression [None]
  - Abdominal pain [None]
  - Procedural pain [None]
  - Migraine with aura [None]
  - Weight increased [None]
  - Loss of libido [None]
  - Myalgia [None]
  - Device difficult to use [None]
  - Vaginal haemorrhage [None]
  - Device deployment issue [None]
  - Chest pain [None]
  - Procedural headache [None]

NARRATIVE: CASE EVENT DATE: 20161017
